FAERS Safety Report 8839925 (Version 1)
Quarter: 2012Q4

REPORT INFORMATION
  Report Type: Spontaneous
  Country: US (occurrence: None)
  Receive Date: 20121012
  Receipt Date: 20121012
  Transmission Date: 20130627
  Serious: Yes (Hospitalization)
  Sender: FDA-Public Use
  Company Number: None

PATIENT
  Age: 88 Year
  Sex: Male
  Weight: 95 kg

DRUGS (1)
  1. PRAMIPEXOLE [Suspect]
     Indication: RESTLESS LEGS
     Dosage: few years - dose inc 3/12
     Route: 048
     Dates: start: 201203

REACTIONS (2)
  - Cardiac failure [None]
  - Ejection fraction decreased [None]
